FAERS Safety Report 17467905 (Version 2)
Quarter: 2020Q2

REPORT INFORMATION
  Report Type: Spontaneous
  Country: FR (occurrence: FR)
  Receive Date: 20200227
  Receipt Date: 20200401
  Transmission Date: 20200713
  Serious: Yes (Life-Threatening, Hospitalization)
  Sender: FDA-Public Use
  Company Number: FR-MYLANLABS-2020M1020906

PATIENT
  Age: 80 Year
  Sex: Female

DRUGS (3)
  1. ALPRAZOLAM MYLAN 0,5 MG TABLETTEN [Suspect]
     Active Substance: ALPRAZOLAM
     Dosage: 22.5 MILLIGRAM
     Dates: start: 20200214
  2. ALPRAZOLAM MYLAN 0,5 MG TABLETTEN [Suspect]
     Active Substance: ALPRAZOLAM
     Indication: PAIN
     Dosage: 15 MILLIGRAM
     Dates: start: 20200214
  3. ALPRAZOLAM MYLAN 0,5 MG TABLETTEN [Suspect]
     Active Substance: ALPRAZOLAM
     Indication: INSOMNIA
     Dosage: UNK
     Dates: end: 202002

REACTIONS (9)
  - Accidental overdose [Unknown]
  - Dizziness [Not Recovered/Not Resolved]
  - Off label use [Recovered/Resolved]
  - Amnesia [Recovering/Resolving]
  - Psychomotor skills impaired [Recovering/Resolving]
  - Confusional state [Not Recovered/Not Resolved]
  - Drug-induced liver injury [Recovered/Resolved]
  - Product prescribing issue [Unknown]
  - Coma [Recovered/Resolved]

NARRATIVE: CASE EVENT DATE: 20200214
